FAERS Safety Report 16874931 (Version 1)
Quarter: 2019Q4

REPORT INFORMATION
  Report Type: Spontaneous
  Country: CA (occurrence: CA)
  Receive Date: 20191001
  Receipt Date: 20191001
  Transmission Date: 20200122
  Serious: Yes (Hospitalization, Other)
  Sender: FDA-Public Use
  Company Number: CA-TEVA-2019-CA-1115087

PATIENT
  Age: 93 Year
  Sex: Male

DRUGS (13)
  1. FUROSEMIDE. [Concomitant]
     Active Substance: FUROSEMIDE
  2. LEVOTHYROXINE. [Concomitant]
     Active Substance: LEVOTHYROXINE
  3. IPRATROPIUM;SALBUTAMOL [Concomitant]
     Active Substance: ALBUTEROL\IPRATROPIUM
  4. PANTOPRAZOLE [Concomitant]
     Active Substance: PANTOPRAZOLE
  5. QUETIAPINE. [Concomitant]
     Active Substance: QUETIAPINE
  6. FRAGMIN [Concomitant]
     Active Substance: DALTEPARIN SODIUM
  7. NITROGLYCERIN. [Concomitant]
     Active Substance: NITROGLYCERIN
  8. CIPROFLOXACIN. [Concomitant]
     Active Substance: CIPROFLOXACIN
  9. PREDNISONE. [Concomitant]
     Active Substance: PREDNISONE
  10. METOPROLOL. [Concomitant]
     Active Substance: METOPROLOL
  11. SPIRONOLACTONE. [Suspect]
     Active Substance: SPIRONOLACTONE
     Indication: OEDEMA PERIPHERAL
     Dosage: 25 MILLIGRAM DAILY;
     Route: 048
  12. SPIRONOLACTONE. [Suspect]
     Active Substance: SPIRONOLACTONE
     Indication: FLUID OVERLOAD
     Route: 065
  13. ASA [Concomitant]
     Active Substance: ASPIRIN

REACTIONS (1)
  - Neutropenia [Recovering/Resolving]
